FAERS Safety Report 9412648 (Version 1)
Quarter: 2013Q3

REPORT INFORMATION
  Report Type: Spontaneous
  Country: GB (occurrence: GB)
  Receive Date: 20130722
  Receipt Date: 20130722
  Transmission Date: 20140515
  Serious: Yes (Other)
  Sender: FDA-Public Use
  Company Number: GB-PFIZER INC-2013211385

PATIENT
  Age: 35 Year
  Sex: Male
  Weight: 93 kg

DRUGS (2)
  1. CHAMPIX [Suspect]
     Indication: SMOKING CESSATION THERAPY
     Dosage: 0.5 MG, 2X/DAY
     Route: 048
     Dates: start: 20130629, end: 20130704
  2. PIRITEZE [Concomitant]
     Dosage: UNK

REACTIONS (4)
  - Haematochezia [Recovered/Resolved]
  - Mood swings [Not Recovered/Not Resolved]
  - Hypoaesthesia [Recovering/Resolving]
  - Feeling cold [Recovered/Resolved]
